FAERS Safety Report 23804121 (Version 1)
Quarter: 2024Q2

REPORT INFORMATION
  Report Type: Report from Study
  Country: PH (occurrence: PH)
  Receive Date: 20240501
  Receipt Date: 20240501
  Transmission Date: 20240715
  Serious: Yes (Other)
  Sender: FDA-Public Use
  Company Number: PH-OTSUKA-2024_009932

PATIENT
  Sex: Male

DRUGS (2)
  1. TOLVAPTAN [Suspect]
     Active Substance: TOLVAPTAN
     Indication: Product used for unknown indication
     Dosage: 2 DF, QD (15 MG TWO TABLETS A DAY)
     Route: 065
     Dates: start: 202301
  2. TOLVAPTAN [Suspect]
     Active Substance: TOLVAPTAN
     Dosage: 15 MG, QD (15 MG ONE TABLET A DAY)
     Route: 065

REACTIONS (2)
  - Radiotherapy [Unknown]
  - Overdose [Unknown]

NARRATIVE: CASE EVENT DATE: 20230101
